FAERS Safety Report 7191866-3 (Version None)
Quarter: 2010Q4

REPORT INFORMATION
  Report Type: 
  Country: None (occurrence: None)
  Receive Date: 20101223
  Receipt Date: 20101210
  Transmission Date: 20110411
  Serious: Yes (Hospitalization)
  Sender: FDA-Public Use
  Company Number: PHHY2010HU84608

PATIENT
  Age: 55 Year
  Sex: Female

DRUGS (3)
  1. ACLASTA [Suspect]
     Indication: OSTEOPOROSIS
     Dosage: 5 MG
     Route: 042
     Dates: start: 20100429
  2. MESALAMINE [Concomitant]
     Dosage: UNK
     Dates: start: 19970101
  3. FRONTIN [Concomitant]
     Dosage: UNK

REACTIONS (5)
  - MUSCLE SPASMS [None]
  - MUSCULOSKELETAL STIFFNESS [None]
  - PAIN OF SKIN [None]
  - PHARYNGITIS [None]
  - PYREXIA [None]
